FAERS Safety Report 9723639 (Version 1)
Quarter: 2013Q4

REPORT INFORMATION
  Report Type: Report from Study
  Country: US (occurrence: US)
  Receive Date: 20131202
  Receipt Date: 20131202
  Transmission Date: 20140711
  Serious: Yes (Other)
  Sender: FDA-Public Use
  Company Number: US-PFIZER INC-2013340906

PATIENT
  Age: 55 Year
  Sex: Female

DRUGS (2)
  1. ATROPINE SULFATE [Suspect]
     Indication: STRESS ECHOCARDIOGRAM
     Dosage: 0.5 MG (0.01 MG/KG)
  2. DOBUTAMINE [Suspect]
     Indication: STRESS ECHOCARDIOGRAM
     Dosage: UNK

REACTIONS (1)
  - Atrioventricular block complete [Recovered/Resolved]
